FAERS Safety Report 7145783-5 (Version None)
Quarter: 2010Q4

REPORT INFORMATION
  Report Type: 
  Country: None (occurrence: None)
  Receive Date: 20101208
  Receipt Date: 20101124
  Transmission Date: 20110411
  Serious: Yes (Hospitalization, Congenital Anomaly)
  Sender: FDA-Public Use
  Company Number: A0871948A

PATIENT
  Sex: Male
  Weight: 2.1 kg

DRUGS (1)
  1. PAXIL [Suspect]

REACTIONS (4)
  - DRUG EXPOSURE DURING PREGNANCY [None]
  - FALLOT'S TETRALOGY [None]
  - HERNIA [None]
  - VENTRICULAR SEPTAL DEFECT [None]
